FAERS Safety Report 15231679 (Version 1)
Quarter: 2018Q3

REPORT INFORMATION
  Report Type: Report from Study
  Country: FR (occurrence: FR)
  Receive Date: 20180802
  Receipt Date: 20180802
  Transmission Date: 20181010
  Serious: Yes (Other)
  Sender: FDA-Public Use
  Company Number: FR-GLAXOSMITHKLINE-FR2018GSK131233

PATIENT
  Age: 77 Year
  Sex: Male

DRUGS (1)
  1. MEPOLIZUMAB [Suspect]
     Active Substance: MEPOLIZUMAB
     Indication: ASTHMA
     Dosage: UNK
     Dates: start: 20160210, end: 20170414

REACTIONS (2)
  - Treatment failure [Unknown]
  - Asthmatic crisis [Unknown]

NARRATIVE: CASE EVENT DATE: 20160919
